FAERS Safety Report 8828623 (Version 1)
Quarter: 2012Q4

REPORT INFORMATION
  Report Type: 
  Country: US (occurrence: US)
  Receive Date: 20121005
  Receipt Date: 20121005
  Transmission Date: 20130627
  Serious: Yes (Hospitalization)
  Sender: FDA-Public Use
  Company Number: US-BAYER-2012-102235

PATIENT
  Age: 32 Year
  Sex: Female

DRUGS (1)
  1. MIRENA [Suspect]
     Dosage: 20 ?g, CONT
     Dates: start: 201112, end: 20120613

REACTIONS (5)
  - Endometriosis [None]
  - Endometriosis [None]
  - Adhesion [None]
  - Menorrhagia [None]
  - Pelvic pain [None]
